FAERS Safety Report 11882556 (Version 1)
Quarter: 2015Q4

REPORT INFORMATION
  Report Type: Spontaneous
  Country: US (occurrence: None)
  Receive Date: 20151230
  Receipt Date: 20151230
  Transmission Date: 20160305
  Serious: Yes (Other)
  Sender: FDA-Public Use
  Company Number: None

PATIENT
  Age: 51 Year
  Sex: Male
  Weight: 76.2 kg

DRUGS (2)
  1. NABUMETONE 500 MG [Suspect]
     Active Substance: NABUMETONE
     Indication: ARTHRITIS
     Dosage: CAN NOT SEE AMOUNT OR DOSE?TWICE DAILY, TAKEN BY MOUTH
     Route: 048
     Dates: start: 20151210, end: 20151214
  2. NABUMETONE 500 MG [Suspect]
     Active Substance: NABUMETONE
     Indication: NECK PAIN
     Dosage: CAN NOT SEE AMOUNT OR DOSE?TWICE DAILY, TAKEN BY MOUTH
     Route: 048
     Dates: start: 20151210, end: 20151214

REACTIONS (3)
  - Headache [None]
  - Glycosylated haemoglobin increased [None]
  - Blood glucose increased [None]

NARRATIVE: CASE EVENT DATE: 20151214
